FAERS Safety Report 8854582 (Version 2)
Quarter: 2012Q4

REPORT INFORMATION
  Report Type: 
  Country: US (occurrence: US)
  Receive Date: 20121023
  Receipt Date: 20121105
  Transmission Date: 20130627
  Serious: Yes (Life-Threatening, Disabling, Other)
  Sender: FDA-Public Use
  Company Number: US-009507513-1210USA006318

PATIENT

DRUGS (2)
  1. FOSAMAX [Suspect]
     Dosage: UNK
     Route: 048
     Dates: start: 200601, end: 200802
  2. BONIVA [Suspect]
     Dosage: UNK
     Dates: start: 200509, end: 200601

REACTIONS (1)
  - Femur fracture [Unknown]
